FAERS Safety Report 18457760 (Version 1)
Quarter: 2020Q4

REPORT INFORMATION
  Report Type: Spontaneous
  Country: US (occurrence: US)
  Receive Date: 20201103
  Receipt Date: 20201103
  Transmission Date: 20210114
  Serious: Yes (Life-Threatening, Hospitalization)
  Sender: FDA-Public Use
  Company Number: US-BAYER-2020-229582

PATIENT
  Age: 36 Year
  Sex: Female

DRUGS (5)
  1. ACETYLSALICYLIC ACID [Suspect]
     Active Substance: ASPIRIN
     Indication: PROPHYLAXIS
  2. AMIODARONE [Concomitant]
     Active Substance: AMIODARONE
  3. MAGNESIUM [Suspect]
     Active Substance: MAGNESIUM
     Indication: PRE-ECLAMPSIA
  4. HEPARIN [Suspect]
     Active Substance: HEPARIN SODIUM
  5. CLOPIDOGREL [Concomitant]
     Active Substance: CLOPIDOGREL BISULFATE

REACTIONS (6)
  - Coronary artery dissection [None]
  - Product use in unapproved indication [None]
  - Contraindicated product administered [None]
  - Premature delivery [None]
  - Maternal exposure during pregnancy [None]
  - Off label use [None]
